FAERS Safety Report 5660119-4 (Version None)
Quarter: 2008Q1

REPORT INFORMATION
  Report Type: 
  Country: None (occurrence: None)
  Receive Date: 20080311
  Receipt Date: 20070914
  Transmission Date: 20080703
  Serious: No
  Sender: FDA-Public Use
  Company Number: US-BAYER-200712958BCC

PATIENT
  Age: 65 Year
  Sex: Female
  Weight: 64 kg

DRUGS (5)
  1. ALEVE [Suspect]
     Indication: BACK PAIN
     Dosage: TOTAL DAILY DOSE: 220 MG  UNIT DOSE: 220 MG
     Route: 048
     Dates: start: 20070908, end: 20070910
  2. SYNTHROID [Concomitant]
  3. PROTONIX [Concomitant]
  4. LIPITOR [Concomitant]
  5. CALCIUM [Concomitant]

REACTIONS (1)
  - PRURITUS GENERALISED [None]
